FAERS Safety Report 9789165 (Version 1)
Quarter: 2013Q4

REPORT INFORMATION
  Report Type: Spontaneous
  Country: US (occurrence: US)
  Receive Date: 20131230
  Receipt Date: 20131230
  Transmission Date: 20140711
  Serious: Yes (Hospitalization, Other)
  Sender: FDA-Public Use
  Company Number: US-B.I. PHARMACEUTICALS,INC./RIDGEFIELD-2013-BI-43838BP

PATIENT
  Age: 77 Year
  Sex: Male
  Weight: 62 kg

DRUGS (4)
  1. SPIRIVA [Suspect]
     Indication: CHRONIC OBSTRUCTIVE PULMONARY DISEASE
     Dosage: 18 MCG
     Route: 055
     Dates: start: 2012, end: 201311
  2. SPIRIVA [Suspect]
     Dosage: 36 MCG
     Route: 055
     Dates: start: 201311
  3. ALBUTEROL [Concomitant]
     Indication: CHRONIC OBSTRUCTIVE PULMONARY DISEASE
     Route: 055
  4. ALBUTEROL [Concomitant]
     Route: 055

REACTIONS (5)
  - Neck injury [Unknown]
  - Fall [Recovered/Resolved]
  - Facial bones fracture [Unknown]
  - Rib fracture [Unknown]
  - Medication error [Not Recovered/Not Resolved]
